FAERS Safety Report 13795933 (Version 1)
Quarter: 2017Q3

REPORT INFORMATION
  Report Type: Other
  Country: KR (occurrence: KR)
  Receive Date: 20170726
  Receipt Date: 20170726
  Transmission Date: 20171127
  Serious: Yes (Hospitalization)
  Sender: FDA-Public Use
  Company Number: KR-B. BRAUN MEDICAL INC.-2023792

PATIENT
  Age: 66 Year
  Sex: Female

DRUGS (2)
  1. CEFAZOLIN SODIUM. [Suspect]
     Active Substance: CEFAZOLIN SODIUM
     Route: 037
  2. OMNIPAQUE [Concomitant]
     Active Substance: IOHEXOL

REACTIONS (2)
  - Dysarthria [None]
  - Status epilepticus [None]
